FAERS Safety Report 9471544 (Version 1)
Quarter: 2013Q3

REPORT INFORMATION
  Report Type: Spontaneous
  Country: IT (occurrence: IT)
  Receive Date: 20130822
  Receipt Date: 20130822
  Transmission Date: 20140515
  Serious: Yes (Other)
  Sender: FDA-Public Use
  Company Number: IT-ACTAVIS-2013-08121

PATIENT
  Age: 77 Year
  Sex: Female
  Weight: 73 kg

DRUGS (1)
  1. IRINOTECAN HYDROCHLORIDE (UNKNOWN) [Suspect]
     Indication: COLON CANCER
     Dosage: 180 MG/SQ M, CYCLIC
     Route: 042
     Dates: start: 20130305, end: 20130305

REACTIONS (4)
  - Necrotising panniculitis [Recovered/Resolved with Sequelae]
  - Skin ulcer [Recovered/Resolved with Sequelae]
  - Erythema [Recovered/Resolved with Sequelae]
  - Face oedema [Recovered/Resolved with Sequelae]
